FAERS Safety Report 11311997 (Version 2)
Quarter: 2015Q3

REPORT INFORMATION
  Report Type: Report from Study
  Country: US (occurrence: US)
  Receive Date: 20150727
  Receipt Date: 20150807
  Transmission Date: 20151125
  Serious: Yes (Other)
  Sender: FDA-Public Use
  Company Number: US-ABBVIE-15K-163-1432555-00

PATIENT
  Age: 77 Year
  Sex: Male

DRUGS (1)
  1. HUMIRA [Suspect]
     Active Substance: ADALIMUMAB
     Indication: RHEUMATOID ARTHRITIS
     Route: 065
     Dates: start: 20140301, end: 20150706

REACTIONS (4)
  - Weight decreased [Recovered/Resolved]
  - Chest discomfort [Recovered/Resolved]
  - Coronary artery occlusion [Unknown]
  - Procedural pain [Unknown]

NARRATIVE: CASE EVENT DATE: 2015
